FAERS Safety Report 6705057-0 (Version None)
Quarter: 2010Q2

REPORT INFORMATION
  Report Type: 
  Country: None (occurrence: None)
  Receive Date: 20100430
  Receipt Date: 20100422
  Transmission Date: 20101027
  Serious: Yes (Hospitalization)
  Sender: FDA-Public Use
  Company Number: B0650409A

PATIENT
  Age: 31 Year
  Sex: Female

DRUGS (3)
  1. AMOXICILLIN AND CLAVULANATE POTASSIUM [Suspect]
     Route: 048
     Dates: start: 20090708, end: 20090710
  2. MEFENAMIC ACID [Suspect]
     Route: 048
     Dates: start: 20090701, end: 20090710
  3. PARLODEL [Suspect]
     Route: 048
     Dates: start: 20090708, end: 20090701

REACTIONS (4)
  - CHEST PAIN [None]
  - DYSPNOEA [None]
  - TYPE I HYPERSENSITIVITY [None]
  - URTICARIA [None]
